FAERS Safety Report 8574487-7 (Version None)
Quarter: 2012Q3

REPORT INFORMATION
  Report Type: 
  Country: None (occurrence: None)
  Receive Date: 20120806
  Receipt Date: 20111104
  Transmission Date: 20120928
  Serious: No
  Sender: FDA-Public Use
  Company Number: US-ABBOTT-11P-163-0871772-00

PATIENT
  Age: 23 Year
  Sex: Male
  Weight: 52.21 kg

DRUGS (12)
  1. QUETIAPINE [Concomitant]
     Indication: INTERMITTENT EXPLOSIVE DISORDER
  2. DEPAKOTE ER [Suspect]
     Dosage: THREE 500MG TABLETS AND ONE 250MG TABLET IN AM
     Dates: start: 20110914
  3. FLUTICASONE FUROATE [Concomitant]
     Indication: HYPERSENSITIVITY
  4. DEPAKOTE ER [Suspect]
     Dates: end: 20110813
  5. LORATADINE [Concomitant]
     Indication: HYPERSENSITIVITY
  6. CLONAZEPAM [Concomitant]
     Indication: ANXIETY
  7. MONTELUCAST [Concomitant]
     Indication: HYPERSENSITIVITY
  8. DEPAKOTE ER [Suspect]
     Indication: BIPOLAR DISORDER
     Dates: start: 20110902, end: 20110914
  9. MULTI-VITAMINS [Concomitant]
     Indication: PRODUCT USED FOR UNKNOWN INDICATION
  10. DEPAKOTE ER [Suspect]
     Indication: INTERMITTENT EXPLOSIVE DISORDER
     Dates: start: 20110813, end: 20110902
  11. RANITIDINE [Concomitant]
     Indication: GASTROOESOPHAGEAL REFLUX DISEASE
  12. CLORAZEPATE DIPOTASSIUM [Concomitant]
     Indication: INSOMNIA

REACTIONS (2)
  - OFF LABEL USE [None]
  - DRUG LEVEL DECREASED [None]
